FAERS Safety Report 25689227 (Version 1)
Quarter: 2025Q3

REPORT INFORMATION
  Report Type: Spontaneous
  Country: EU (occurrence: EU)
  Receive Date: 20250818
  Receipt Date: 20250818
  Transmission Date: 20251020
  Serious: Yes (Other)
  Sender: ALEXION PHARMACEUTICALS
  Company Number: EU-AstraZeneca-CH-00928449A

PATIENT
  Age: 85 Year
  Sex: Female

DRUGS (1)
  1. DAPAGLIFLOZIN [Suspect]
     Active Substance: DAPAGLIFLOZIN
     Indication: Philadelphia chromosome positive
     Dosage: 10 MILLIGRAM, QD
     Dates: start: 202503, end: 202507

REACTIONS (3)
  - Chronic kidney disease [Unknown]
  - Blood creatinine abnormal [Unknown]
  - Hypotension [Unknown]

NARRATIVE: CASE EVENT DATE: 20250301
